FAERS Safety Report 25840884 (Version 1)
Quarter: 2025Q3

REPORT INFORMATION
  Report Type: Spontaneous
  Country: US (occurrence: US)
  Receive Date: 20250924
  Receipt Date: 20250924
  Transmission Date: 20251020
  Serious: Yes (Other)
  Sender: MYLAN
  Company Number: US-MYLANLABS-2025M1080714

PATIENT
  Age: 69 Year
  Sex: Male

DRUGS (2)
  1. VANCOMYCIN [Suspect]
     Active Substance: VANCOMYCIN
     Indication: Diarrhoea
  2. VANCOMYCIN [Suspect]
     Active Substance: VANCOMYCIN
     Indication: Illness

REACTIONS (3)
  - Overlap syndrome [Unknown]
  - Cutaneous vasculitis [Unknown]
  - Linear IgA disease [Unknown]
